FAERS Safety Report 12412628 (Version 10)
Quarter: 2018Q4

REPORT INFORMATION
  Report Type: Spontaneous
  Country: FR (occurrence: FR)
  Receive Date: 20160527
  Receipt Date: 20181204
  Transmission Date: 20190204
  Serious: Yes (Hospitalization, Disabling, Congenital Anomaly, Other)
  Sender: FDA-Public Use
  Company Number: FR-ABBVIE-16P-056-1638240-00

PATIENT
  Sex: Female

DRUGS (3)
  1. SPECIAFOLDINE [Concomitant]
     Active Substance: FOLIC ACID
     Indication: PRODUCT USED FOR UNKNOWN INDICATION
     Route: 065
  2. NEURONTIN [Concomitant]
     Active Substance: GABAPENTIN
     Indication: PRODUCT USED FOR UNKNOWN INDICATION
     Route: 065
  3. DEPAKINE CHRONO [Suspect]
     Active Substance: VALPROATE SODIUM
     Indication: MATERNAL EXPOSURE TIMING UNSPECIFIED
     Route: 064

REACTIONS (42)
  - Asthmatic crisis [Not Recovered/Not Resolved]
  - Gastrooesophageal reflux disease [Unknown]
  - Educational problem [Unknown]
  - Foetal anticonvulsant syndrome [Unknown]
  - Wound dehiscence [Unknown]
  - Obesity [Unknown]
  - Lung disorder [Unknown]
  - Memory impairment [Unknown]
  - Gait disturbance [Unknown]
  - Speech disorder [Unknown]
  - Dysmorphism [Unknown]
  - Constipation [Unknown]
  - Weight increased [Unknown]
  - Bronchiolitis [Recovered/Resolved]
  - Amenorrhoea [Unknown]
  - Foetal exposure during pregnancy [Unknown]
  - Respiratory distress [Unknown]
  - Language disorder [Unknown]
  - Prognathism [Unknown]
  - Anxiety [Unknown]
  - Cognitive disorder [Unknown]
  - Hernia [Unknown]
  - Ear, nose and throat examination abnormal [Unknown]
  - Ear infection [Unknown]
  - Motor dysfunction [Not Recovered/Not Resolved]
  - Haemangioma [Unknown]
  - Dysphagia [Unknown]
  - Myopia [Unknown]
  - Nasopharyngitis [Unknown]
  - Fatigue [Unknown]
  - Disability [Not Recovered/Not Resolved]
  - Visual impairment [Unknown]
  - Peroneal nerve palsy [Unknown]
  - Pain in extremity [Unknown]
  - Obsessive-compulsive disorder [Unknown]
  - Diarrhoea [Unknown]
  - Disturbance in attention [Unknown]
  - Adenoidal hypertrophy [Unknown]
  - Astigmatism [Unknown]
  - Hypermobility syndrome [Unknown]
  - Sluggishness [Unknown]
  - Urinary tract infection [Unknown]

NARRATIVE: CASE EVENT DATE: 2003
